FAERS Safety Report 4389414-6 (Version None)
Quarter: 2004Q3

REPORT INFORMATION
  Report Type: 
  Country: None (occurrence: None)
  Receive Date: 20040702
  Receipt Date: 20040528
  Transmission Date: 20050211
  Serious: Yes (Hospitalization)
  Sender: FDA-Public Use
  Company Number: PHBS2004NO06987

PATIENT
  Age: 51 Year
  Sex: Male

DRUGS (1)
  1. DIOVAN [Suspect]
     Dosage: 80 MG/DAY
     Route: 048
     Dates: start: 20040421, end: 20040525

REACTIONS (6)
  - ANAPHYLACTIC REACTION [None]
  - CYANOSIS [None]
  - HYPOTENSION [None]
  - RESPIRATORY ARREST [None]
  - SYNCOPE [None]
  - URINARY INCONTINENCE [None]
